FAERS Safety Report 21519584 (Version 2)
Quarter: 2022Q4

REPORT INFORMATION
  Report Type: Spontaneous
  Country: US (occurrence: US)
  Receive Date: 20221028
  Receipt Date: 20221128
  Transmission Date: 20230113
  Serious: Yes (Other)
  Sender: FDA-Public Use
  Company Number: US-JNJFOC-20221038448

PATIENT
  Age: 41 Year
  Sex: Female

DRUGS (1)
  1. ACETAMINOPHEN [Suspect]
     Active Substance: ACETAMINOPHEN
     Indication: Suspected COVID-19
     Route: 048
     Dates: start: 20201218, end: 20201223

REACTIONS (3)
  - Exposure during pregnancy [Unknown]
  - Drug-induced liver injury [Unknown]
  - Overdose [Unknown]

NARRATIVE: CASE EVENT DATE: 20201201
